FAERS Safety Report 9175706 (Version 2)
Quarter: 2014Q1

REPORT INFORMATION
  Report Type: Report from Study
  Country: IT (occurrence: IT)
  Receive Date: 20130320
  Receipt Date: 20140219
  Transmission Date: 20141002
  Serious: Yes (Other)
  Sender: FDA-Public Use
  Company Number: PHHY2013IT022984

PATIENT
  Age: 62 Year
  Sex: Male

DRUGS (5)
  1. CERTICAN [Suspect]
     Indication: PROPHYLAXIS AGAINST TRANSPLANT REJECTION
     Dosage: 5 MG, QD
     Route: 048
     Dates: start: 20100215
  2. CERTICAN [Suspect]
     Dosage: 4.75 UNK, PER DAY
     Route: 048
     Dates: start: 20130328
  3. CICLOSPORIN [Concomitant]
     Indication: PROPHYLAXIS AGAINST TRANSPLANT REJECTION
     Dosage: 50 MG, UNK
     Route: 048
     Dates: start: 20090818
  4. CICLOSPORIN [Concomitant]
     Dosage: 75 UNK, PER DAY
     Route: 048
     Dates: start: 20110606, end: 20140109
  5. PREDNISONE [Concomitant]
     Indication: PROPHYLAXIS AGAINST TRANSPLANT REJECTION
     Dosage: 7.5 MG, UNK
     Route: 048
     Dates: start: 20040703, end: 20140109

REACTIONS (2)
  - Renal failure chronic [Not Recovered/Not Resolved]
  - Osteoarthritis [Unknown]
